FAERS Safety Report 25082323 (Version 1)
Quarter: 2025Q1

REPORT INFORMATION
  Report Type: Spontaneous
  Country: US (occurrence: US)
  Receive Date: 20250317
  Receipt Date: 20250317
  Transmission Date: 20250409
  Serious: No
  Sender: HIKMA
  Company Number: US-HIKMA PHARMACEUTICALS USA INC.-US-H14001-24-10942

PATIENT
  Age: 61 Year

DRUGS (1)
  1. DESVENLAFAXINE [Suspect]
     Active Substance: DESVENLAFAXINE
     Indication: Product used for unknown indication
     Route: 065

REACTIONS (4)
  - Visual impairment [Unknown]
  - Product residue present [Unknown]
  - Drug ineffective [Unknown]
  - Wrong technique in product usage process [Unknown]
